FAERS Safety Report 6572489-3 (Version None)
Quarter: 2010Q1

REPORT INFORMATION
  Report Type: 
  Country: None (occurrence: None)
  Receive Date: 20100205
  Receipt Date: 20100127
  Transmission Date: 20100710
  Serious: Yes (Death, Hospitalization)
  Sender: FDA-Public Use
  Company Number: CA-AMGEN-US379322

PATIENT
  Sex: Male

DRUGS (9)
  1. NEUPOGEN [Suspect]
     Indication: BLOOD STEM CELL HARVEST
     Route: 058
     Dates: start: 20091121, end: 20091127
  2. SYNTHROID [Concomitant]
  3. ASPIRIN [Concomitant]
  4. ALTACE [Concomitant]
  5. ATENOLOL [Concomitant]
  6. CRESTOR [Concomitant]
  7. VITAMIN B-12 [Concomitant]
  8. PYRIDOXINE [Concomitant]
  9. METFORMIN HCL [Concomitant]

REACTIONS (2)
  - CHEST PAIN [None]
  - MYOCARDIAL ISCHAEMIA [None]
